FAERS Safety Report 14665116 (Version 1)
Quarter: 2018Q1

REPORT INFORMATION
  Report Type: Spontaneous
  Country: US (occurrence: US)
  Receive Date: 20180320
  Receipt Date: 20180320
  Transmission Date: 20180509
  Serious: Yes (Life-Threatening, Hospitalization)
  Sender: FDA-Public Use
  Company Number: None

PATIENT
  Age: 27 Year
  Sex: Female
  Weight: 85.5 kg

DRUGS (2)
  1. DIGESTIVE ENZYMES [Concomitant]
     Active Substance: UNSPECIFIED INGREDIENT
  2. NEXPLANON [Suspect]
     Active Substance: ETONOGESTREL
     Indication: CONTRACEPTION
     Dosage: QUANTITY:1 ROD;OTHER FREQUENCY:EVERY 3 YEARS;?
     Route: 058
     Dates: start: 20160316, end: 20171027

REACTIONS (3)
  - Cholelithiasis [None]
  - Cholecystectomy [None]
  - Pancreatitis necrotising [None]

NARRATIVE: CASE EVENT DATE: 20161117
